FAERS Safety Report 7734869-X (Version None)
Quarter: 2011Q3

REPORT INFORMATION
  Report Type: 
  Country: None (occurrence: None)
  Receive Date: 20110907
  Receipt Date: 20110728
  Transmission Date: 20111222
  Serious: Yes (Hospitalization)
  Sender: FDA-Public Use
  Company Number: US-TYCO HEALTHCARE/MALLINCKRODT-T201101494

PATIENT
  Sex: Male

DRUGS (2)
  1. EXALGO [Suspect]
     Dosage: LOW DOSE
  2. EXALGO [Suspect]
     Dosage: HIGH DOSE

REACTIONS (1)
  - RESPIRATORY DEPRESSION [None]
